FAERS Safety Report 21208943 (Version 4)
Quarter: 2022Q3

REPORT INFORMATION
  Report Type: Spontaneous
  Country: GB (occurrence: GB)
  Receive Date: 20220812
  Receipt Date: 20220825
  Transmission Date: 20221026
  Serious: Yes (Other)
  Sender: FDA-Public Use
  Company Number: GB-009507513-2208GBR004528

PATIENT
  Sex: Female

DRUGS (1)
  1. LAGEVRIO [Suspect]
     Active Substance: MOLNUPIRAVIR
     Dosage: UNK
     Route: 048

REACTIONS (6)
  - Paralysis [Unknown]
  - Dysphagia [Unknown]
  - Oropharyngeal pain [Unknown]
  - Throat irritation [Unknown]
  - Swollen tongue [Unknown]
  - Product use complaint [Unknown]
